FAERS Safety Report 6070729-0 (Version None)
Quarter: 2009Q1

REPORT INFORMATION
  Report Type: 
  Country: None (occurrence: None)
  Receive Date: 20090209
  Receipt Date: 20090130
  Transmission Date: 20090719
  Serious: Yes (Hospitalization)
  Sender: FDA-Public Use
  Company Number: IT-PFIZER INC-2008157180

PATIENT

DRUGS (2)
  1. NEURONTIN [Suspect]
     Indication: DIABETIC NEUROPATHY
     Dosage: 2 UNK, 1X/DAY
     Route: 048
     Dates: start: 20081203, end: 20081209
  2. TICLODONE [Suspect]
     Indication: ANGIOPLASTY
     Dosage: 2 UNK, 1X/DAY
     Route: 048
     Dates: start: 20081203, end: 20081209

REACTIONS (3)
  - FACE OEDEMA [None]
  - MYOSITIS [None]
  - SKIN REACTION [None]
